FAERS Safety Report 4796784-3 (Version None)
Quarter: 2005Q4

REPORT INFORMATION
  Report Type: 
  Country: None (occurrence: None)
  Receive Date: 20051011
  Receipt Date: 20051011
  Transmission Date: 20060501
  Serious: Yes (Other)
  Sender: FDA-Public Use
  Company Number: None

PATIENT
  Age: 39 Year
  Sex: Male
  Weight: 62.6 kg

DRUGS (1)
  1. MYCAMINE [Suspect]
     Indication: COCCIDIOIDOMYCOSIS
     Dosage: 50MG EVERY OTHER DAY IV DRIP
     Route: 041
     Dates: start: 20051007, end: 20051007

REACTIONS (3)
  - GRIP STRENGTH DECREASED [None]
  - HYPOAESTHESIA [None]
  - INFUSION RELATED REACTION [None]
